FAERS Safety Report 21137458 (Version 2)
Quarter: 2022Q3

REPORT INFORMATION
  Report Type: Report from Study
  Country: NL (occurrence: NL)
  Receive Date: 20220727
  Receipt Date: 20220811
  Transmission Date: 20221027
  Serious: Yes (Other)
  Sender: FDA-Public Use
  Company Number: NL-ABBVIE-22K-114-4474477-00

PATIENT
  Sex: Male

DRUGS (5)
  1. CARBIDOPA\LEVODOPA [Suspect]
     Active Substance: CARBIDOPA\LEVODOPA
     Indication: Parkinson^s disease
     Route: 050
     Dates: start: 20200127
  2. CARBIDOPA\LEVODOPA [Suspect]
     Active Substance: CARBIDOPA\LEVODOPA
     Dosage: MD: 11.0 ML, CD: 3.7 ML/H, ED: 3.0 ML
     Route: 050
  3. BENSERAZIDE HYDROCHLORIDE\LEVODOPA [Concomitant]
     Active Substance: BENSERAZIDE HYDROCHLORIDE\LEVODOPA
     Indication: Parkinson^s disease
     Dosage: 2 PIECES AT 10 PM
     Route: 048
     Dates: start: 200501
  4. ROPINIROLE [Concomitant]
     Active Substance: ROPINIROLE
     Indication: Parkinson^s disease
     Dosage: 1 PIECE AT 10 PM
     Route: 048
     Dates: start: 201501
  5. RIVOTRIL [Concomitant]
     Active Substance: CLONAZEPAM
     Indication: Hallucination
     Dosage: 1 PIECE AT 10 PM
     Route: 048
     Dates: start: 201801

REACTIONS (1)
  - Rehabilitation therapy [Not Recovered/Not Resolved]
